FAERS Safety Report 16933802 (Version 2)
Quarter: 2020Q2

REPORT INFORMATION
  Report Type: Spontaneous
  Country: IT (occurrence: IT)
  Receive Date: 20191018
  Receipt Date: 20200522
  Transmission Date: 20200713
  Serious: Yes (Other)
  Sender: FDA-Public Use
  Company Number: IT-ACCORD-158400

PATIENT
  Age: 73 Year
  Sex: Male

DRUGS (4)
  1. FLUOROURACIL. [Suspect]
     Active Substance: FLUOROURACIL
     Indication: ADENOCARCINOMA GASTRIC
     Dates: start: 2018, end: 2018
  2. OXALIPLATIN. [Suspect]
     Active Substance: OXALIPLATIN
     Indication: ADENOCARCINOMA GASTRIC
     Dates: start: 2018, end: 2018
  3. FOLINIC ACID [Suspect]
     Active Substance: LEUCOVORIN
     Indication: ADENOCARCINOMA GASTRIC
     Dates: start: 2018, end: 2018
  4. DOCETAXEL. [Suspect]
     Active Substance: DOCETAXEL
     Indication: ADENOCARCINOMA GASTRIC
     Dates: start: 2018, end: 2018

REACTIONS (5)
  - Diarrhoea [Recovered/Resolved]
  - Transdifferentiation of neoplasm [Recovered/Resolved]
  - Fatigue [Recovered/Resolved]
  - Off label use [Unknown]
  - Erosive oesophagitis [Unknown]

NARRATIVE: CASE EVENT DATE: 201810
